FAERS Safety Report 5210297-6 (Version None)
Quarter: 2007Q1

REPORT INFORMATION
  Report Type: 
  Country: None (occurrence: None)
  Receive Date: 20070111
  Receipt Date: 20061229
  Transmission Date: 20070707
  Serious: Yes (Death, Hospitalization)
  Sender: FDA-Public Use
  Company Number: HQWYE130202JAN07

PATIENT
  Age: 34 Year
  Sex: Male

DRUGS (6)
  1. CORDARONE [Suspect]
     Dosage: ORAL
     Route: 048
     Dates: start: 20060927, end: 20061005
  2. AMIKIN [Suspect]
     Dosage: INTRAVENOUS
     Route: 042
     Dates: start: 20060927, end: 20061002
  3. LASIX [Suspect]
     Dosage: INTRAVENOUS
     Route: 042
     Dates: start: 20060927, end: 20060928
  4. TIENAM (CILASTATIN/IMIPENEM,) [Suspect]
     Dosage: INTRAVENOUS
     Route: 042
     Dates: start: 20060927, end: 20060928
  5. FLUCONAZOLE [Suspect]
     Dosage: INTRAVENOUS
     Route: 042
     Dates: start: 20060927, end: 20061006
  6. VANCOMYCIN [Suspect]
     Dosage: INTRAVENOUS
     Route: 042
     Dates: start: 20060927, end: 20061014

REACTIONS (7)
  - ABDOMINAL OPERATION [None]
  - BRONCHOPULMONARY ASPERGILLOSIS [None]
  - DERMATITIS BULLOUS [None]
  - METABOLIC ACIDOSIS [None]
  - MULTI-ORGAN FAILURE [None]
  - SKIN EXFOLIATION [None]
  - THROMBOCYTOPENIA [None]
